FAERS Safety Report 24317653 (Version 2)
Quarter: 2024Q4

REPORT INFORMATION
  Report Type: Spontaneous
  Country: BR (occurrence: BR)
  Receive Date: 20240913
  Receipt Date: 20241001
  Transmission Date: 20250115
  Serious: Yes (Hospitalization, Other)
  Sender: TORRENT
  Company Number: BR-TORRENT-00006255

PATIENT
  Age: 15 Year
  Sex: Female
  Weight: 70 kg

DRUGS (3)
  1. LAMOTRIGINE [Suspect]
     Active Substance: LAMOTRIGINE
     Indication: Affective disorder
     Dosage: 1 TABLET DAILY
     Route: 048
     Dates: start: 20240517, end: 20240606
  2. ESCITALOPRAM OXALATE [Concomitant]
     Active Substance: ESCITALOPRAM OXALATE
     Indication: Anxiety
     Dosage: 1 TABLET DAILY
     Route: 065
  3. METHYLPHENIDATE HYDROCHLORIDE [Concomitant]
     Active Substance: METHYLPHENIDATE HYDROCHLORIDE
     Indication: Attention deficit hyperactivity disorder
     Dosage: 1 TABLET DAILY
     Route: 065

REACTIONS (6)
  - Stevens-Johnson syndrome [Not Recovered/Not Resolved]
  - Product prescribing issue [Unknown]
  - Erythema multiforme [Unknown]
  - Scab [Unknown]
  - Mouth injury [Unknown]
  - Skin injury [Unknown]

NARRATIVE: CASE EVENT DATE: 20240517
